FAERS Safety Report 7429412-9 (Version None)
Quarter: 2011Q2

REPORT INFORMATION
  Report Type: 
  Country: None (occurrence: None)
  Receive Date: 20110414
  Receipt Date: 20110331
  Transmission Date: 20111010
  Serious: Yes (Death, Hospitalization, Other)
  Sender: FDA-Public Use
  Company Number: 030551

PATIENT
  Sex: Male
  Weight: 58.1 kg

DRUGS (1)
  1. CIMZIA [Suspect]
     Indication: CROHN'S DISEASE
     Dosage: 400 MG 1X/28 DAY SUBCUTANEOUS
     Route: 058
     Dates: start: 20090201, end: 20110208

REACTIONS (2)
  - INTESTINAL PERFORATION [None]
  - FISTULA [None]
